FAERS Safety Report 15355549 (Version 1)
Quarter: 2018Q3

REPORT INFORMATION
  Report Type: Spontaneous
  Country: US (occurrence: US)
  Receive Date: 20180906
  Receipt Date: 20180906
  Transmission Date: 20181010
  Serious: Yes (Hospitalization)
  Sender: FDA-Public Use
  Company Number: US-RADIUS HEALTH, INC.-2018US002060

PATIENT
  Age: 53 Year
  Sex: Female

DRUGS (3)
  1. TYMLOS [Suspect]
     Active Substance: ABALOPARATIDE
     Indication: OSTEOPOROSIS POSTMENOPAUSAL
     Dosage: 80 MCG
     Route: 058
  2. TYMLOS [Suspect]
     Active Substance: ABALOPARATIDE
     Indication: SPINAL CORD INJURY
  3. TYMLOS [Suspect]
     Active Substance: ABALOPARATIDE
     Indication: BRAIN INJURY

REACTIONS (3)
  - Off label use [Unknown]
  - Drug dose omission [Unknown]
  - Transient ischaemic attack [Unknown]
